FAERS Safety Report 17514949 (Version 3)
Quarter: 2020Q1

REPORT INFORMATION
  Report Type: Spontaneous
  Country: US (occurrence: US)
  Receive Date: 20200309
  Receipt Date: 20200325
  Transmission Date: 20200409
  Serious: Yes (Other)
  Sender: FDA-Public Use
  Company Number: US-BAXTER-2020BAX004901

PATIENT
  Age: 79 Year
  Sex: Male

DRUGS (1)
  1. EXTRANEAL [Suspect]
     Active Substance: CALCIUM CHLORIDE\ICODEXTRIN\MAGNESIUM CHLORIDE\SODIUM CHLORIDE\SODIUM LACTATE
     Indication: PERITONEAL DIALYSIS
     Dosage: 3-4 WEEKS
     Route: 033
     Dates: start: 202002, end: 202002

REACTIONS (7)
  - Haemorrhage [Recovered/Resolved]
  - Pain [Recovering/Resolving]
  - Skin fissures [Recovered/Resolved]
  - Mobility decreased [Unknown]
  - Drug hypersensitivity [Recovering/Resolving]
  - Pneumonitis [Not Recovered/Not Resolved]
  - Hypoacusis [Recovering/Resolving]

NARRATIVE: CASE EVENT DATE: 202002
